FAERS Safety Report 4530027-0 (Version None)
Quarter: 2004Q4

REPORT INFORMATION
  Report Type: 
  Country: None (occurrence: None)
  Receive Date: 20041215
  Receipt Date: 20041124
  Transmission Date: 20050328
  Serious: Yes (Other)
  Sender: FDA-Public Use
  Company Number: 2004243276US

PATIENT
  Age: 57 Year
  Sex: Female

DRUGS (5)
  1. PROVERA [Suspect]
     Indication: ILL-DEFINED DISORDER
  2. ESTRADIOL [Suspect]
     Indication: ILL-DEFINED DISORDER
  3. ESTRATEST H.S. [Suspect]
     Indication: ILL-DEFINED DISORDER
  4. ESTRADIOL [Suspect]
     Indication: ILL-DEFINED DISORDER
  5. MEDROXYPROGESTERONE [Suspect]
     Indication: ILL-DEFINED DISORDER

REACTIONS (3)
  - BREAST CANCER IN SITU [None]
  - OESTROGEN RECEPTOR ASSAY POSITIVE [None]
  - PROGESTERONE RECEPTOR ASSAY POSITIVE [None]
